FAERS Safety Report 4332460-9 (Version None)
Quarter: 2004Q2

REPORT INFORMATION
  Report Type: 
  Country: None (occurrence: None)
  Receive Date: 20040401
  Receipt Date: 20040324
  Transmission Date: 20050107
  Serious: Yes (Hospitalization)
  Sender: FDA-Public Use
  Company Number: FRWYE665525MAR04

PATIENT
  Age: 55 Year
  Sex: Female

DRUGS (4)
  1. RAPAMUNE [Suspect]
     Indication: PROPHYLAXIS AGAINST TRANSPLANT REJECTION
     Dosage: 8 MG 1X PER 1 DAY; 7 MG 1X PER 1 DAY
     Route: 048
     Dates: start: 19990916, end: 20031101
  2. RAPAMUNE [Suspect]
     Indication: PROPHYLAXIS AGAINST TRANSPLANT REJECTION
     Dosage: 8 MG 1X PER 1 DAY; 7 MG 1X PER 1 DAY
     Route: 048
     Dates: start: 20031101
  3. CELLCEPT [Suspect]
     Indication: PROPHYLAXIS AGAINST TRANSPLANT REJECTION
     Route: 048
     Dates: start: 19990916, end: 20000101
  4. GLUCOCORTICOSTEROIDS (GLUCOCORTICOSTEROIDS) [Concomitant]

REACTIONS (2)
  - BREAST CANCER [None]
  - LEUKOPENIA [None]
